FAERS Safety Report 5578160-9 (Version None)
Quarter: 2007Q4

REPORT INFORMATION
  Report Type: 
  Country: None (occurrence: None)
  Receive Date: 20071231
  Receipt Date: 20071220
  Transmission Date: 20080405
  Serious: Yes (Other)
  Sender: FDA-Public Use
  Company Number: BR-PFIZER INC-2007104479

PATIENT
  Age: 38 Year
  Sex: Female

DRUGS (2)
  1. DOSTINEX [Suspect]
     Indication: PITUITARY TUMOUR BENIGN
     Route: 048
  2. PRIMOSISTON [Suspect]

REACTIONS (4)
  - ANXIETY [None]
  - ENDOCRINE DISORDER [None]
  - ENDOMETRIAL HYPERTROPHY [None]
  - OVARIAN CYST [None]
